FAERS Safety Report 17147599 (Version 1)
Quarter: 2019Q4

REPORT INFORMATION
  Report Type: Report from Study
  Country: KR (occurrence: KR)
  Receive Date: 20191212
  Receipt Date: 20191212
  Transmission Date: 20200122
  Serious: Yes (Hospitalization, Other)
  Sender: FDA-Public Use
  Company Number: KR-AMGEN-KORNI2019206063

PATIENT
  Age: 34 Year
  Sex: Female

DRUGS (8)
  1. CYCLOPHOSPHAMIDE. [Concomitant]
     Active Substance: CYCLOPHOSPHAMIDE
     Dosage: 1080 MILLIGRAM
     Dates: start: 20191030, end: 20191030
  2. DOXORUBICIN [Concomitant]
     Active Substance: DOXORUBICIN
     Dosage: 108 MILLIGRAM
     Dates: start: 20191120, end: 20191120
  3. DOXORUBICIN [Concomitant]
     Active Substance: DOXORUBICIN
     Indication: BREAST CANCER
     Dosage: 100 MILLIGRAM
     Dates: start: 20191008, end: 20191008
  4. PEGFILGRASTIM [Suspect]
     Active Substance: PEGFILGRASTIM
     Indication: BREAST CANCER
     Dosage: 6 MILLIGRAM
     Route: 058
     Dates: start: 20191031, end: 20191031
  5. PEGFILGRASTIM [Suspect]
     Active Substance: PEGFILGRASTIM
     Dosage: 6 MILLIGRAM
     Route: 058
     Dates: start: 20191121, end: 20191121
  6. CYCLOPHOSPHAMIDE. [Concomitant]
     Active Substance: CYCLOPHOSPHAMIDE
     Indication: BREAST CANCER
     Dosage: 1000 MILLIGRAM
     Dates: start: 20191008, end: 20191008
  7. DOXORUBICIN [Concomitant]
     Active Substance: DOXORUBICIN
     Dosage: 108 MILLIGRAM
     Dates: start: 20191030, end: 20191030
  8. CYCLOPHOSPHAMIDE. [Concomitant]
     Active Substance: CYCLOPHOSPHAMIDE
     Dosage: 1080 MILLIGRAM
     Dates: start: 20191120, end: 20191120

REACTIONS (1)
  - Febrile neutropenia [Recovered/Resolved]

NARRATIVE: CASE EVENT DATE: 20191128
